FAERS Safety Report 7077900-X (Version None)
Quarter: 2010Q4

REPORT INFORMATION
  Report Type: 
  Country: None (occurrence: None)
  Receive Date: 20101101
  Receipt Date: 20101019
  Transmission Date: 20110411
  Serious: Yes (Hospitalization)
  Sender: FDA-Public Use
  Company Number: FR-ELI_LILLY_AND_COMPANY-FR201010004094

PATIENT
  Sex: Female

DRUGS (4)
  1. ZYPREXA [Suspect]
     Indication: BIPOLAR I DISORDER
     Dosage: UNK, UNKNOWN
     Route: 048
     Dates: start: 20080501, end: 20090118
  2. XANAX [Concomitant]
     Indication: DEPRESSION
     Dosage: 0.25 MG, DAILY (1/D)
     Route: 048
  3. DEPAKOTE [Concomitant]
     Indication: DEPRESSION
     Dosage: UNK, UNKNOWN
     Route: 048
  4. ANAFRANIL [Concomitant]
     Indication: DEPRESSION
     Dosage: 225 MG, DAILY (1/D)
     Route: 048

REACTIONS (4)
  - AORTIC ARTERIOSCLEROSIS [None]
  - ARTERIAL THROMBOSIS LIMB [None]
  - CEREBRAL INFARCTION [None]
  - LOW DENSITY LIPOPROTEIN INCREASED [None]
